FAERS Safety Report 7890002-5 (Version None)
Quarter: 2011Q4

REPORT INFORMATION
  Report Type: 
  Country: None (occurrence: None)
  Receive Date: 20111103
  Receipt Date: 20111026
  Transmission Date: 20120403
  Serious: No
  Sender: FDA-Public Use
  Company Number: PHHY2011FR29937

PATIENT
  Sex: Female
  Weight: 57 kg

DRUGS (6)
  1. AMITRIPTYLINE HCL [Concomitant]
  2. EXTAVIA [Suspect]
     Indication: MULTIPLE SCLEROSIS
     Dosage: 250 UG, 3 TIMES PER WEEK
     Route: 058
     Dates: start: 20100720, end: 20110711
  3. CLONAZEPAM [Concomitant]
     Indication: NEURALGIA
     Dosage: 10 DRP, DAILY
     Route: 048
     Dates: start: 20100110
  4. CYMBALTA [Concomitant]
     Indication: NEURALGIA
     Dosage: 60 MG, UNK
     Route: 048
     Dates: start: 20100404
  5. MYOLASTAN [Concomitant]
  6. LYRICA [Concomitant]
     Indication: NEURALGIA
     Dosage: 150 MG, UNK
     Route: 048
     Dates: start: 20110401

REACTIONS (8)
  - MYALGIA [None]
  - PAIN [None]
  - DEPRESSION [None]
  - WEIGHT DECREASED [None]
  - RED BLOOD CELL COUNT DECREASED [None]
  - HYPOAESTHESIA [None]
  - INJECTION SITE ERYTHEMA [None]
  - DIZZINESS [None]
